FAERS Safety Report 9308973 (Version 1)
Quarter: 2013Q2

REPORT INFORMATION
  Report Type: Spontaneous
  Country: FR (occurrence: FR)
  Receive Date: 20130524
  Receipt Date: 20130524
  Transmission Date: 20140414
  Serious: Yes (Hospitalization)
  Sender: FDA-Public Use
  Company Number: FR-009507513-1305FRA010074

PATIENT
  Age: 84 Year
  Sex: Female

DRUGS (17)
  1. CELESTENE [Suspect]
     Dosage: UNK
     Dates: start: 20130305, end: 20130305
  2. ACETAMINOPHEN [Suspect]
     Indication: PAIN
     Dosage: 2 G, UNK
     Route: 048
     Dates: start: 20130226, end: 20130307
  3. ACETAMINOPHEN [Suspect]
     Indication: PAIN
     Dosage: 3 G, ONCE
     Route: 042
     Dates: start: 20130224, end: 20130225
  4. CELEBREX [Suspect]
     Indication: PAIN
     Dosage: 200 MG, BID
     Route: 048
     Dates: start: 20130227, end: 20130307
  5. OMEPRAZOLE [Suspect]
     Dosage: UNK
     Route: 048
     Dates: start: 20130227, end: 20130307
  6. RANIPLEX [Suspect]
     Dosage: UNK
     Route: 048
     Dates: start: 20130305, end: 20130305
  7. AUGMENTIN [Suspect]
     Dosage: UNK
     Dates: start: 201303, end: 20130307
  8. SEVORANE [Suspect]
     Indication: ANAESTHESIA
     Dosage: UNK
     Dates: start: 20130305, end: 20130305
  9. SUFENTANIL [Suspect]
     Indication: ANAESTHESIA
     Dosage: UNK
     Dates: start: 20130305, end: 20130305
  10. DIPRIVAN [Suspect]
     Indication: ANAESTHESIA
     Dosage: UNK
     Dates: start: 20130305, end: 20130305
  11. KETAMINE HYDROCHLORIDE [Suspect]
     Indication: ANAESTHESIA
     Dosage: UNK
     Dates: start: 20130305, end: 20130305
  12. EPHEDRINE [Suspect]
     Dosage: UNK
     Dates: start: 20130305, end: 20130305
  13. NEO-SYNEPHRINE [Suspect]
     Dosage: UNK
     Dates: start: 20130305, end: 20130305
  14. DROLEPTAN [Suspect]
     Dosage: UNK
     Dates: start: 20130305, end: 20130305
  15. VANCOMYCIN [Suspect]
     Dosage: UNK
     Dates: start: 20130305, end: 20130305
  16. MORPHINE [Suspect]
     Dosage: UNK
     Dates: start: 20130305, end: 20130305
  17. CATAPRESSAN [Suspect]
     Dosage: UNK
     Dates: start: 20130305, end: 20130305

REACTIONS (2)
  - Hepatocellular injury [Recovering/Resolving]
  - Cholestasis [Recovering/Resolving]
